FAERS Safety Report 19909216 (Version 1)
Quarter: 2021Q4

REPORT INFORMATION
  Report Type: Spontaneous
  Country: US (occurrence: US)
  Receive Date: 20211001
  Receipt Date: 20211001
  Transmission Date: 20220303
  Serious: No
  Sender: FDA-Public Use
  Company Number: US-AMARIN PHARMA, INC.-2021AMR000086

PATIENT
  Age: 67 Year
  Sex: Female
  Weight: 86.26 kg

DRUGS (2)
  1. VASCEPA [Suspect]
     Active Substance: ICOSAPENT ETHYL
     Indication: Product used for unknown indication
     Dates: start: 2020
  2. ROSUVASTATIN [Concomitant]
     Active Substance: ROSUVASTATIN
     Indication: Blood cholesterol increased
     Route: 048

REACTIONS (4)
  - Contusion [Unknown]
  - Fall [Recovered/Resolved]
  - Tibia fracture [Unknown]
  - Product physical issue [Unknown]

NARRATIVE: CASE EVENT DATE: 20201101
